FAERS Safety Report 21658388 (Version 1)
Quarter: 2022Q4

REPORT INFORMATION
  Report Type: Spontaneous
  Country: US (occurrence: US)
  Receive Date: 20221129
  Receipt Date: 20221129
  Transmission Date: 20230113
  Serious: No
  Sender: FDA-Public Use
  Company Number: US-PFIZER INC-202201332296

PATIENT
  Age: 82 Year
  Sex: Female
  Weight: 63.96 kg

DRUGS (5)
  1. PAXLOVID [Suspect]
     Active Substance: NIRMATRELVIR\RITONAVIR
     Indication: COVID-19 treatment
     Dosage: 150MG AND 100MG DOSE
     Dates: start: 20221119, end: 20221124
  2. TYLENOL [Concomitant]
     Active Substance: ACETAMINOPHEN
     Dosage: UNK
  3. VITAMIN D NOS [Concomitant]
     Active Substance: VITAMIN D NOS
     Dosage: UNK
  4. SYSTANE (HYPROMELLOSE 2910 (4000 MPA.S)) [Concomitant]
     Active Substance: HYPROMELLOSE 2910 (4000 MPA.S)
     Dosage: UNK
  5. GABAPENTIN [Concomitant]
     Active Substance: GABAPENTIN
     Dosage: 300MG 3 TIMES A DAY AND TAKE ANOTHER 100MG IF

REACTIONS (2)
  - Therapeutic product effect incomplete [Unknown]
  - Dysgeusia [Unknown]

NARRATIVE: CASE EVENT DATE: 20221101
